FAERS Safety Report 8535285-3 (Version None)
Quarter: 2012Q3

REPORT INFORMATION
  Report Type: 
  Country: None (occurrence: None)
  Receive Date: 20120725
  Receipt Date: 20120712
  Transmission Date: 20120928
  Serious: Yes (Hospitalization, Other)
  Sender: FDA-Public Use
  Company Number: US-PAR PHARMACEUTICAL, INC-2012SCPR004514

PATIENT

DRUGS (5)
  1. METRONIDAZOLE [Suspect]
     Dosage: UNK, UNKNOWN
  2. FLUCONAZOLE [Suspect]
     Indication: BETA HAEMOLYTIC STREPTOCOCCAL INFECTION
     Dosage: UNK, UNKNOWN, SINGLE COURSE
     Route: 042
  3. VANCOMYCIN [Suspect]
     Indication: BETA HAEMOLYTIC STREPTOCOCCAL INFECTION
     Dosage: UNK, UNKNOWN
     Route: 042
  4. VANCOMYCIN [Suspect]
     Dosage: UNK, UNKNOWN
     Route: 042
  5. METRONIDAZOLE [Suspect]
     Indication: BETA HAEMOLYTIC STREPTOCOCCAL INFECTION
     Dosage: UNK, UNKNOWN
     Route: 042

REACTIONS (1)
  - DRUG RASH WITH EOSINOPHILIA AND SYSTEMIC SYMPTOMS [None]
